FAERS Safety Report 9297590 (Version 4)
Quarter: 2013Q2

REPORT INFORMATION
  Report Type: Spontaneous
  Country: US (occurrence: US)
  Receive Date: 20130520
  Receipt Date: 20130626
  Transmission Date: 20140414
  Serious: No
  Sender: FDA-Public Use
  Company Number: US-PFIZER INC-2013153260

PATIENT
  Sex: Male

DRUGS (3)
  1. LYRICA [Suspect]
     Dosage: 100 MG, UNK
     Dates: end: 20130502
  2. LYRICA [Suspect]
     Dosage: UNK
  3. SIMVASTATIN [Suspect]
     Dosage: UNK

REACTIONS (1)
  - Pain in extremity [Not Recovered/Not Resolved]
